FAERS Safety Report 5133128-1 (Version None)
Quarter: 2006Q4

REPORT INFORMATION
  Report Type: 
  Country: None (occurrence: None)
  Receive Date: 20061017
  Receipt Date: 20061006
  Transmission Date: 20070319
  Serious: Yes (Other)
  Sender: FDA-Public Use
  Company Number: 2006123616

PATIENT
  Age: 68 Year
  Sex: Male

DRUGS (7)
  1. LIPITOR [Suspect]
     Dosage: 5 MG (PER DAY), ORAL
     Route: 048
     Dates: start: 20060101, end: 20060301
  2. HALCION [Concomitant]
  3. TICLOPIDINE HCL [Concomitant]
  4. ASPIRIN [Concomitant]
  5. CARVEDILOL [Concomitant]
  6. BLOPRESS               (CANDESARTAN CILEXETIL) [Concomitant]
  7. ISOSORBIDE DINITRATE [Concomitant]

REACTIONS (4)
  - LABORATORY TEST ABNORMAL [None]
  - MENTAL DISORDER [None]
  - RHABDOMYOLYSIS [None]
  - WEIGHT INCREASED [None]
